FAERS Safety Report 9716908 (Version 2)
Quarter: 2013Q4

REPORT INFORMATION
  Report Type: Spontaneous
  Country: TR (occurrence: TR)
  Receive Date: 20131127
  Receipt Date: 20131212
  Transmission Date: 20140711
  Serious: Yes (Death)
  Sender: FDA-Public Use
  Company Number: TR-JNJFOC-20131109467

PATIENT
  Age: 56 Year
  Sex: Male

DRUGS (2)
  1. ZYTIGA [Suspect]
     Indication: PROSTATE CANCER METASTATIC
     Route: 048
     Dates: start: 201209
  2. DELTACORTRIL [Suspect]
     Indication: PROSTATE CANCER METASTATIC
     Dosage: 1X10 MG/DAY
     Route: 065
     Dates: start: 201209

REACTIONS (3)
  - Death [Fatal]
  - Decubitus ulcer [Unknown]
  - Pain [Unknown]
